FAERS Safety Report 14315222 (Version 1)
Quarter: 2017Q4

REPORT INFORMATION
  Report Type: Spontaneous
  Country: GB (occurrence: GB)
  Receive Date: 20171221
  Receipt Date: 20171221
  Transmission Date: 20180321
  Serious: Yes (Other)
  Sender: FDA-Public Use
  Company Number: GB-TEVA-2017-GB-833858

PATIENT
  Age: 67 Year
  Sex: Female

DRUGS (8)
  1. DIGOXIN. [Concomitant]
     Active Substance: DIGOXIN
  2. TIOTROPIUM [Concomitant]
     Active Substance: TIOTROPIUM
  3. WARFARIN [Suspect]
     Active Substance: WARFARIN
     Route: 048
     Dates: start: 20171001, end: 20171003
  4. DAKTARIN [Interacting]
     Active Substance: MICONAZOLE NITRATE
     Indication: ORAL CANDIDIASIS
     Route: 048
     Dates: start: 20171001, end: 20171003
  5. METFORMIN [Concomitant]
     Active Substance: METFORMIN HYDROCHLORIDE
  6. NYSTATIN. [Interacting]
     Active Substance: NYSTATIN
     Indication: ORAL CANDIDIASIS
     Route: 048
     Dates: start: 20171003, end: 20171017
  7. BISOPROLOL [Concomitant]
     Active Substance: BISOPROLOL
  8. SALBUTAMOL [Concomitant]
     Active Substance: ALBUTEROL
     Route: 055

REACTIONS (2)
  - International normalised ratio increased [Recovered/Resolved]
  - Labelled drug-drug interaction medication error [Unknown]

NARRATIVE: CASE EVENT DATE: 20171017
